FAERS Safety Report 19399530 (Version 3)
Quarter: 2022Q2

REPORT INFORMATION
  Report Type: Spontaneous
  Country: AU (occurrence: AU)
  Receive Date: 20210610
  Receipt Date: 20220423
  Transmission Date: 20220721
  Serious: Yes (Death, Other)
  Sender: FDA-Public Use
  Company Number: AU-BAXTER-2021BAX014844

PATIENT
  Age: 57 Year
  Sex: Male

DRUGS (28)
  1. CYCLOPHOSPHAMIDE [Suspect]
     Active Substance: CYCLOPHOSPHAMIDE
     Indication: Diffuse large B-cell lymphoma stage II
     Dosage: 6 CYCLES OF R2-CHOP REGIMEN FOR 21 DAYS EACH CYCLE
     Route: 065
     Dates: start: 201509, end: 201603
  2. CYCLOPHOSPHAMIDE [Suspect]
     Active Substance: CYCLOPHOSPHAMIDE
     Indication: Diffuse large B-cell lymphoma refractory
     Dosage: 3 CYCLES OF R-DA-EPOCH CHEMOTHERAPY
     Route: 065
     Dates: start: 2020
  3. CYCLOPHOSPHAMIDE [Suspect]
     Active Substance: CYCLOPHOSPHAMIDE
     Dosage: HYPERCVAD CYCLE B
     Route: 065
     Dates: start: 2020
  4. DOXIL [Suspect]
     Active Substance: DOXORUBICIN HYDROCHLORIDE
     Indication: Diffuse large B-cell lymphoma refractory
     Dosage: 3 CYCLES OF R-DA-EPOCH CHEMOTHERAPY
     Route: 065
     Dates: start: 2020
  5. DOXIL [Suspect]
     Active Substance: DOXORUBICIN HYDROCHLORIDE
     Dosage: HYPERCVAD CYCLE B
     Route: 065
     Dates: start: 2020
  6. IFOSFAMIDE [Suspect]
     Active Substance: IFOSFAMIDE
     Indication: Haematopoietic stem cell mobilisation
     Dosage: 3 CYCLES OF RICE CHEMOTHERAPY
     Route: 065
     Dates: start: 2019
  7. RITUXIMAB [Suspect]
     Active Substance: RITUXIMAB
     Indication: Diffuse large B-cell lymphoma stage II
     Dosage: 6 CYCLES OF R-CHOP REGIMEN, 21 DAYS EACH CYCLE, PLUS 2R
     Route: 065
     Dates: start: 201509, end: 201603
  8. RITUXIMAB [Suspect]
     Active Substance: RITUXIMAB
     Indication: Diffuse large B-cell lymphoma recurrent
     Dosage: 2 CYCLES OF R-DHAP CHEMOTHERAPY
     Route: 065
     Dates: start: 2019
  9. RITUXIMAB [Suspect]
     Active Substance: RITUXIMAB
     Indication: Haematopoietic stem cell mobilisation
     Dosage: 3 CYCLES OF RICE CHEMOTHERAPY
     Route: 065
     Dates: start: 2019
  10. RITUXIMAB [Suspect]
     Active Substance: RITUXIMAB
     Indication: Diffuse large B-cell lymphoma refractory
     Dosage: 3 CYCLES OF R-DA-EPOCH CHEMOTHERAPY
     Route: 065
     Dates: start: 2020
  11. DOXORUBICIN HYDROCHLORIDE [Suspect]
     Active Substance: DOXORUBICIN HYDROCHLORIDE
     Indication: Diffuse large B-cell lymphoma stage II
     Dosage: 6 CYCLES OF R2-CHOP REGIMEN FOR 21 DAYS EACH CYCLE
     Route: 065
     Dates: start: 201509, end: 201603
  12. VINCRISTINE SULFATE [Suspect]
     Active Substance: VINCRISTINE SULFATE
     Indication: Diffuse large B-cell lymphoma stage II
     Dosage: 6 CYCLES OF R-CHOP REGIMEN FOR 21 DAYS
     Route: 065
     Dates: start: 201509, end: 201603
  13. VINCRISTINE SULFATE [Suspect]
     Active Substance: VINCRISTINE SULFATE
     Indication: Diffuse large B-cell lymphoma refractory
     Dosage: 3 CYCLES OF R-DA-EPOCH CHEMOTHERAPY
     Route: 065
     Dates: start: 2020
  14. VINCRISTINE SULFATE [Suspect]
     Active Substance: VINCRISTINE SULFATE
     Dosage: HYPERCVAD CYCLE B
     Route: 065
     Dates: start: 2020
  15. PREDNISONE [Suspect]
     Active Substance: PREDNISONE
     Indication: Diffuse large B-cell lymphoma stage II
     Dosage: 6 CYCLES OF R2-CHOP REGIMEN FOR 21 DAYS EACH CYCLE
     Route: 065
     Dates: start: 201509, end: 201603
  16. PREDNISONE [Suspect]
     Active Substance: PREDNISONE
     Indication: Diffuse large B-cell lymphoma refractory
     Dosage: 3 CYCLES OF R-DA-EPOCH CHEMOTHERAPY
     Route: 065
     Dates: start: 2020
  17. DEXAMETHASONE [Suspect]
     Active Substance: DEXAMETHASONE
     Indication: Diffuse large B-cell lymphoma recurrent
     Dosage: 2 CYCLES OF R-DHAP CHEMOTHERAPY
     Route: 065
     Dates: start: 2019
  18. DEXAMETHASONE [Suspect]
     Active Substance: DEXAMETHASONE
     Indication: Diffuse large B-cell lymphoma refractory
     Dosage: HYPERCVAD CYCLE B
     Route: 065
     Dates: start: 2020
  19. CYTARABINE [Suspect]
     Active Substance: CYTARABINE
     Indication: Diffuse large B-cell lymphoma recurrent
     Dosage: 2 CYCLES OF R-DHAP CHEMOTHERAPY
     Route: 065
     Dates: start: 2019
  20. CISPLATIN [Suspect]
     Active Substance: CISPLATIN
     Indication: Diffuse large B-cell lymphoma recurrent
     Dosage: 2 CYCLES OF R-DHAP CHEMOTHERAPY
     Route: 065
     Dates: start: 2019
  21. ETOPOSIDE [Suspect]
     Active Substance: ETOPOSIDE
     Indication: Haematopoietic stem cell mobilisation
     Dosage: 3 CYCLES OF RICE CHEMOTHERAPY
     Route: 065
     Dates: start: 2019
  22. ETOPOSIDE [Suspect]
     Active Substance: ETOPOSIDE
     Indication: Diffuse large B-cell lymphoma refractory
     Dosage: 3 CYCLES OF R-DA-EPOCH CHEMOTHERAPY
     Route: 065
     Dates: start: 2020
  23. CARBOPLATIN [Suspect]
     Active Substance: CARBOPLATIN
     Indication: Haematopoietic stem cell mobilisation
     Dosage: 3 CYCLES OF RICE CHEMOTHERAPY
     Route: 065
     Dates: start: 2019
  24. ALLOPURINOL [Suspect]
     Active Substance: ALLOPURINOL
     Indication: Product used for unknown indication
     Route: 065
  25. COLCHICINE [Suspect]
     Active Substance: COLCHICINE
     Indication: Product used for unknown indication
     Route: 065
  26. MIRTAZAPINE [Suspect]
     Active Substance: MIRTAZAPINE
     Indication: Product used for unknown indication
     Route: 065
  27. ESOMEPRAZOLE [Suspect]
     Active Substance: ESOMEPRAZOLE
     Indication: Product used for unknown indication
     Route: 065
  28. SERETIDE [Suspect]
     Active Substance: FLUTICASONE PROPIONATE\SALMETEROL XINAFOATE
     Indication: Product used for unknown indication
     Dosage: 250/25
     Route: 065

REACTIONS (10)
  - Death [Fatal]
  - Diffuse large B-cell lymphoma recurrent [Unknown]
  - Diffuse large B-cell lymphoma refractory [Unknown]
  - Lymphadenopathy [Unknown]
  - Metastases to spleen [Unknown]
  - Metastases to lung [Unknown]
  - Headache [Unknown]
  - Central nervous system lymphoma [Unknown]
  - Off label use [Unknown]
  - Product use in unapproved indication [Unknown]

NARRATIVE: CASE EVENT DATE: 20190101
